FAERS Safety Report 5758072-8 (Version None)
Quarter: 2008Q2

REPORT INFORMATION
  Report Type: 
  Country: None (occurrence: None)
  Receive Date: 20080602
  Receipt Date: 20080602
  Transmission Date: 20081010
  Serious: Yes (Other)
  Sender: FDA-Public Use
  Company Number: None

PATIENT
  Age: 39 Year
  Sex: Female
  Weight: 74.8435 kg

DRUGS (2)
  1. PROTOPIC [Suspect]
     Indication: DERMATITIS ATOPIC
     Dosage: THIN COAT ON AFFECTED AREAS 1-2X:  3-5 DAYS TOP
     Route: 061
     Dates: start: 20040101, end: 20080530
  2. PROTOPIC [Suspect]
     Indication: ECZEMA
     Dosage: THIN COAT ON AFFECTED AREAS 1-2X:  3-5 DAYS TOP
     Route: 061
     Dates: start: 20040101, end: 20080530

REACTIONS (3)
  - FEELING HOT [None]
  - PRURITUS [None]
  - SCRATCH [None]
